FAERS Safety Report 4719936-7 (Version None)
Quarter: 2005Q3

REPORT INFORMATION
  Report Type: 
  Country: None (occurrence: None)
  Receive Date: 20050721
  Receipt Date: 20050131
  Transmission Date: 20060218
  Serious: No
  Sender: FDA-Public Use
  Company Number: US-GLAXOSMITHKLINE-A0543087A

PATIENT
  Age: 42 Year
  Sex: Male

DRUGS (7)
  1. AVANDIA [Suspect]
     Dosage: 8MG PER DAY
     Route: 048
     Dates: start: 20030101
  2. TEGRETOL [Concomitant]
  3. HALDOL [Concomitant]
  4. LIPITOR [Concomitant]
  5. VASOTEC RPD [Concomitant]
  6. GLUCOPHAGE [Concomitant]
  7. DEMECLOCYCLINE [Concomitant]

REACTIONS (1)
  - OEDEMA PERIPHERAL [None]
